FAERS Safety Report 7576008-4 (Version None)
Quarter: 2011Q2

REPORT INFORMATION
  Report Type: 
  Country: None (occurrence: None)
  Receive Date: 20110628
  Receipt Date: 20100108
  Transmission Date: 20111010
  Serious: Yes (Death, Hospitalization, Other)
  Sender: FDA-Public Use
  Company Number: US-BAYER-201010343NA

PATIENT
  Age: 71 Year
  Sex: Female
  Weight: 73 kg

DRUGS (21)
  1. TRASYLOL [Suspect]
     Indication: AORTIC SURGERY
  2. RED BLOOD CELLS [Concomitant]
     Dosage: 3 U, ONCE
     Route: 042
     Dates: start: 20020226
  3. ACCUPRIL [Concomitant]
     Indication: HYPERTENSION
     Dosage: 40 MG, QD
     Route: 048
     Dates: start: 19800101, end: 20020226
  4. LANOXIN [Concomitant]
     Indication: HEART RATE ABNORMAL
     Dosage: .125 MG, QD
     Route: 048
     Dates: start: 19500101, end: 20020304
  5. VANCOMYCIN [Concomitant]
     Dosage: 1 GRAM
     Route: 042
     Dates: start: 20020226, end: 20020317
  6. NITROGLYCERIN [Concomitant]
     Dosage: UNK
     Route: 042
     Dates: start: 20020226
  7. HYDROCHLOROTHIAZIDE [Concomitant]
     Indication: FLUID RETENTION
     Dosage: 12.5 MG, QD
     Route: 048
     Dates: start: 19800101, end: 20020101
  8. CALCIUM CHLORIDE [Concomitant]
     Dosage: 750 MG
     Route: 042
     Dates: start: 20020226
  9. TRASYLOL [Suspect]
     Indication: MITRAL VALVE REPLACEMENT
     Dosage: 300 CC PUMP PRIME
     Route: 042
     Dates: start: 20020226, end: 20020226
  10. LOVENOX [Concomitant]
     Dosage: 30 MG, BID
     Route: 058
     Dates: start: 20020223, end: 20020320
  11. COUMADIN [Concomitant]
     Dosage: 2.5 MG, QD
     Route: 048
  12. HEPARIN [Concomitant]
     Dosage: 20,000 UNITS
     Route: 042
     Dates: start: 20020226
  13. SUFENTANIL CITRATE [Concomitant]
     Dosage: 500MCG TOTAL
     Route: 042
     Dates: start: 20020226
  14. DIOVAN [Concomitant]
     Dosage: 160 MG, QD
     Route: 048
     Dates: start: 20020226
  15. HEPARIN [Concomitant]
     Dosage: 2000 U, ONCE
     Route: 013
     Dates: start: 20020225, end: 20020225
  16. ANCEF [Concomitant]
     Dosage: 1 GRAM
     Route: 042
     Dates: start: 20020226, end: 20020227
  17. DOBUTAMINE HCL [Concomitant]
     Dosage: UNK
     Route: 042
     Dates: start: 20020226, end: 20020302
  18. VERSED [Concomitant]
     Dosage: 16MG TOTAL
     Route: 042
     Dates: start: 20020226
  19. KDUR [Concomitant]
     Dosage: 20 MEQ, QD
     Route: 048
     Dates: end: 20020225
  20. CARDIZEM [Concomitant]
     Indication: HYPERTENSION
     Dosage: 240 MG, BID
     Route: 048
     Dates: start: 19800101, end: 20020226
  21. LASIX [Concomitant]
     Route: 042

REACTIONS (13)
  - RENAL IMPAIRMENT [None]
  - UNEVALUABLE EVENT [None]
  - INJURY [None]
  - RENAL INJURY [None]
  - EMOTIONAL DISTRESS [None]
  - STRESS [None]
  - ANXIETY [None]
  - ANHEDONIA [None]
  - MULTI-ORGAN FAILURE [None]
  - DEATH [None]
  - RENAL FAILURE [None]
  - FEAR [None]
  - PAIN [None]
